FAERS Safety Report 5023505-1 (Version None)
Quarter: 2006Q2

REPORT INFORMATION
  Report Type: 
  Country: None (occurrence: None)
  Receive Date: 20060612
  Receipt Date: 20060420
  Transmission Date: 20061013
  Serious: Yes (Other)
  Sender: FDA-Public Use
  Company Number: US-GLAXOSMITHKLINE-A0603279A

PATIENT
  Age: 46 Year
  Sex: Female

DRUGS (6)
  1. LOTRONEX [Suspect]
     Indication: IRRITABLE BOWEL SYNDROME
     Dosage: 1MG TWICE PER DAY
     Route: 048
     Dates: start: 20000728, end: 20000801
  2. PAXIL [Concomitant]
     Indication: ANXIETY
     Dates: start: 19990801
  3. PREVACID [Concomitant]
     Dates: start: 20000701
  4. REGLAN [Concomitant]
  5. ANUSOL [Concomitant]
  6. METHOTREXATE SODIUM [Concomitant]
     Indication: RHEUMATOID ARTHRITIS

REACTIONS (9)
  - ABDOMINAL DISTENSION [None]
  - CONSTIPATION [None]
  - DEFAECATION URGENCY [None]
  - FEELING ABNORMAL [None]
  - GASTROINTESTINAL INJURY [None]
  - GASTROINTESTINAL MOTILITY DISORDER [None]
  - HAEMATOCHEZIA [None]
  - RECTAL FISSURE [None]
  - RECTAL HAEMORRHAGE [None]
